FAERS Safety Report 8853342 (Version 2)
Quarter: 2012Q4

REPORT INFORMATION
  Report Type: 
  Country: US (occurrence: US)
  Receive Date: 20121023
  Receipt Date: 20121109
  Transmission Date: 20130627
  Serious: Yes (Death, Life-Threatening, Hospitalization, Disabling)
  Sender: FDA-Public Use
  Company Number: US-009507513-1210USA008822

PATIENT
  Sex: Male

DRUGS (3)
  1. JANUMET [Suspect]
     Indication: DIABETES MELLITUS
     Dosage: 1 DF, bid
     Route: 048
     Dates: start: 200810, end: 201106
  2. VYTORIN [Concomitant]
     Route: 048
  3. ASPIRIN [Concomitant]

REACTIONS (4)
  - Pancreatic carcinoma [Fatal]
  - Blood urine present [Unknown]
  - Liver disorder [Unknown]
  - Lung disorder [Unknown]
